FAERS Safety Report 10524449 (Version 1)
Quarter: 2014Q4

REPORT INFORMATION
  Report Type: Spontaneous
  Country: US (occurrence: None)
  Receive Date: 20141015
  Receipt Date: 20141015
  Transmission Date: 20150528
  Serious: Yes (Other)
  Sender: FDA-Public Use
  Company Number: None

PATIENT
  Age: 23 Year
  Sex: Male
  Weight: 93.9 kg

DRUGS (1)
  1. GRALISE [Suspect]
     Active Substance: GABAPENTIN
     Dosage: GRALISE TAKEN BY MOUTH
     Route: 048

REACTIONS (2)
  - Abdominal pain upper [None]
  - Pneumonia [None]
